FAERS Safety Report 7913234-6 (Version None)
Quarter: 2011Q4

REPORT INFORMATION
  Report Type: 
  Country: None (occurrence: None)
  Receive Date: 20111114
  Receipt Date: 20111103
  Transmission Date: 20120403
  Serious: Yes (Other)
  Sender: FDA-Public Use
  Company Number: CA-ASTRAZENECA-2011SE56276

PATIENT
  Age: 82 Year
  Sex: Male

DRUGS (17)
  1. SPIRIVA [Concomitant]
     Dosage: INHALE THE CONTENTS OF ONE CAPSULE ONCE DAILY VIA HANDIHALER
  2. PEGLYTE KIT [Concomitant]
     Dosage: TAKE AS DIRECTED
  3. FLOVENT HFA [Concomitant]
  4. APO-CAL [Concomitant]
     Route: 048
  5. ARIMIDEX [Suspect]
     Indication: BREAST CANCER MALE
     Route: 048
     Dates: start: 20100101
  6. APO-CITALOPRAM [Concomitant]
     Route: 048
  7. APO-ALENDRONATE [Concomitant]
     Route: 048
  8. APO-LACTULOSE [Concomitant]
     Dosage: TWO TABLE SPOON FULS ON SUNDAY AND TWO TABLE SPOONFULS ON MONDAY
  9. WELLBUTRIN [Concomitant]
     Route: 048
  10. MUCILLIUM [Concomitant]
     Route: 048
  11. PMS-HYDROMORPHONE [Concomitant]
     Dosage: EVERY 8 HOURS AS REQUIRED
     Route: 048
  12. VITAMIN B-12 [Concomitant]
     Route: 048
  13. APO-ATORVASTATIN [Concomitant]
     Route: 048
  14. ENTROPHEN [Concomitant]
     Route: 048
  15. APO-TRAZODONE [Concomitant]
     Route: 048
  16. APO-CEPHALEX [Concomitant]
     Route: 048
  17. REX VITAMIN D [Concomitant]
     Dosage: 400 U DAILY
     Route: 048

REACTIONS (2)
  - LUNG NEOPLASM MALIGNANT [None]
  - OFF LABEL USE [None]
